FAERS Safety Report 8904450 (Version 1)
Quarter: 2012Q4

REPORT INFORMATION
  Report Type: 
  Country: GB (occurrence: GB)
  Receive Date: 20121113
  Receipt Date: 20121113
  Transmission Date: 20130627
  Serious: Yes (Death, Other)
  Sender: FDA-Public Use
  Company Number: GB-ASTELLAS-2012EU009796

PATIENT
  Age: 47 Year
  Sex: Female

DRUGS (1)
  1. VESICARE [Suspect]
     Dosage: 5 mg, Unknown/D
     Route: 048

REACTIONS (3)
  - Sudden death [Fatal]
  - Liver injury [Fatal]
  - Liver function test abnormal [Not Recovered/Not Resolved]
